FAERS Safety Report 8591539-6 (Version None)
Quarter: 2012Q3

REPORT INFORMATION
  Report Type: 
  Country: None (occurrence: None)
  Receive Date: 20120814
  Receipt Date: 20120807
  Transmission Date: 20120928
  Serious: Yes (Other)
  Sender: FDA-Public Use
  Company Number: US-JNJFOC-20120803254

PATIENT
  Age: 43 Year
  Sex: Female

DRUGS (5)
  1. IBUPROFEN [Suspect]
     Route: 065
  2. CYMBALTA [Suspect]
     Indication: DEPRESSION
     Route: 065
  3. GABAPENTIN [Suspect]
     Indication: FIBROMYALGIA
     Route: 065
  4. IBUPROFEN [Suspect]
     Indication: FIBROMYALGIA
     Route: 065
  5. SAVELLA [Suspect]
     Indication: FIBROMYALGIA
     Route: 065

REACTIONS (3)
  - PAIN [None]
  - DEPRESSION [None]
  - MOVEMENT DISORDER [None]
